FAERS Safety Report 8847986 (Version 2)
Quarter: 2015Q2

REPORT INFORMATION
  Report Type: Report from Study
  Country: US (occurrence: US)
  Receive Date: 20121018
  Receipt Date: 20150629
  Transmission Date: 20150821
  Serious: Yes (Other)
  Sender: FDA-Public Use
  Company Number: US-ROCHE-1142163

PATIENT
  Age: 8 Year
  Sex: Male
  Weight: 32 kg

DRUGS (15)
  1. PROTROPIN [Suspect]
     Active Substance: SOMATREM
     Indication: GROWTH HORMONE DEFICIENCY
     Route: 058
     Dates: start: 19960909
  2. PROTROPIN [Suspect]
     Active Substance: SOMATREM
     Route: 058
  3. RITALIN [Concomitant]
     Active Substance: METHYLPHENIDATE HYDROCHLORIDE
     Route: 065
  4. BIAXIN [Concomitant]
     Active Substance: CLARITHROMYCIN
  5. SYNTHROID [Concomitant]
     Active Substance: LEVOTHYROXINE SODIUM
     Route: 048
  6. CORTEF [Concomitant]
     Active Substance: HYDROCORTISONE
     Dosage: AFTERNOON
     Route: 048
  7. CORTEF [Concomitant]
     Active Substance: HYDROCORTISONE
     Dosage: EVENING
     Route: 048
  8. NUTROPIN [Suspect]
     Active Substance: SOMATROPIN
     Indication: DWARFISM
     Route: 058
  9. DEPAKOTE [Concomitant]
     Active Substance: DIVALPROEX SODIUM
     Route: 065
  10. SYNTHROID [Concomitant]
     Active Substance: LEVOTHYROXINE SODIUM
     Route: 048
  11. PROTROPIN [Suspect]
     Active Substance: SOMATREM
     Route: 058
  12. SYNTHROID [Concomitant]
     Active Substance: LEVOTHYROXINE SODIUM
     Route: 048
  13. PROTROPIN [Suspect]
     Active Substance: SOMATREM
     Indication: DWARFISM
     Route: 058
  14. SYNTHROID [Concomitant]
     Active Substance: LEVOTHYROXINE SODIUM
     Route: 048
  15. SYNTHROID [Concomitant]
     Active Substance: LEVOTHYROXINE SODIUM
     Route: 048

REACTIONS (10)
  - Seizure [Unknown]
  - Chronic sinusitis [Unknown]
  - Dry skin [Unknown]
  - Arthralgia [Unknown]
  - Ill-defined disorder [Unknown]
  - Temperature intolerance [Unknown]
  - Alopecia [Unknown]
  - Fatigue [Unknown]
  - Somnolence [Unknown]
  - Headache [Unknown]

NARRATIVE: CASE EVENT DATE: 19971108
